FAERS Safety Report 4636167-X (Version None)
Quarter: 2005Q2

REPORT INFORMATION
  Report Type: 
  Country: None (occurrence: None)
  Receive Date: 20050414
  Receipt Date: 20050414
  Transmission Date: 20051028
  Serious: Yes (Hospitalization, Other)
  Sender: FDA-Public Use
  Company Number: None

PATIENT
  Sex: Male
  Weight: 100 kg

DRUGS (1)
  1. IBUPROFEN [Suspect]
     Indication: ARTHRALGIA
     Dosage: /800 MG PO TID
     Route: 048

REACTIONS (3)
  - ASTHENIA [None]
  - HAEMATEMESIS [None]
  - LOSS OF CONSCIOUSNESS [None]
